FAERS Safety Report 13035793 (Version 2)
Quarter: 2017Q1

REPORT INFORMATION
  Report Type: Spontaneous
  Country: US (occurrence: US)
  Receive Date: 20161216
  Receipt Date: 20170110
  Transmission Date: 20170428
  Serious: No
  Sender: FDA-Public Use
  Company Number: US-PFIZER INC-2016575395

PATIENT
  Age: 67 Year
  Sex: Male
  Weight: 85.26 kg

DRUGS (6)
  1. VIAGRA [Suspect]
     Active Substance: SILDENAFIL CITRATE
     Dosage: UNK, (100, 60 WEEKS)
  2. NAPROSYN [Concomitant]
     Active Substance: NAPROXEN
     Dosage: 500 MG TABLET, TAKE 1 TABLET,  2 TIMES EVERY DAY WITH FOOD
     Route: 048
  3. DULERA [Concomitant]
     Active Substance: FORMOTEROL FUMARATE DIHYDRATE\MOMETASONE FUROATE
     Dosage: 100 MCG - 5 MCG/ACTUATION HFA AEROSOL INHALER, INHALE 1 PUFF 2 TIMES EVERY DAY I
     Route: 055
  4. VENTOLIN HFA [Concomitant]
     Active Substance: ALBUTEROL SULFATE
     Dosage: 90MCG/ACTUATION AEROSOL, INHALE 2 PUFF BY INHALATION ROUTE EVERY INHALER
     Route: 055
  5. VIAGRA [Suspect]
     Active Substance: SILDENAFIL CITRATE
     Dosage: 25 MG, AS NEEDED (EVERY DAY AS NEEDED APPROXIMATELY 1 HOUR BEFORE SEXUAL ACTIVITY)
     Route: 048
  6. CIALIS [Concomitant]
     Active Substance: TADALAFIL
     Dosage: 5 MG TABLETS TAKE 1 TABLET EVERYDAY
     Route: 048

REACTIONS (3)
  - Skin lesion [Unknown]
  - Urinary tract infection [Unknown]
  - Skin papilloma [Unknown]
